FAERS Safety Report 4277722-9 (Version None)
Quarter: 2004Q1

REPORT INFORMATION
  Report Type: 
  Country: None (occurrence: None)
  Receive Date: 20040123
  Receipt Date: 20030130
  Transmission Date: 20041129
  Serious: Yes (Other)
  Sender: FDA-Public Use
  Company Number: PHEH2003US01139

PATIENT
  Age: 65 Year
  Sex: Male

DRUGS (22)
  1. LOPRESSOR [Concomitant]
     Indication: HYPERTENSION
     Dosage: 100 MG, UNK
     Dates: start: 20000724
  2. BACTRIM [Concomitant]
     Dates: start: 20000901, end: 20010416
  3. FAMVIR [Concomitant]
     Dates: start: 20000901, end: 20010416
  4. DIFLUCAN [Concomitant]
  5. PREVACID [Concomitant]
     Dates: start: 20000901
  6. AVELOX [Concomitant]
     Dosage: UNK, QD
  7. FUROSEMIDE [Concomitant]
     Dosage: UNK, ONCE/SINGLE
  8. CEPHALOSPORINES [Concomitant]
  9. PROVIGIL [Concomitant]
     Dosage: UNK, UNK
     Dates: start: 20011024
  10. AREDIA [Suspect]
     Indication: MULTIPLE MYELOMA
     Dosage: 90MG/Q4WKS
     Route: 042
     Dates: start: 20000724, end: 20011221
  11. ZOMETA [Suspect]
     Indication: MULTIPLE MYELOMA
     Dosage: 4 MG, QMO
     Dates: start: 20011221
  12. THALIDOMIDE [Concomitant]
     Dosage: 100 MG, QOD
  13. DEXAMETHASONE [Concomitant]
     Dosage: 40 MG, QWK
     Dates: start: 20000901
  14. MONOPRIL [Concomitant]
     Dosage: 10 MG, QD
     Dates: start: 20000724
  15. WARFARIN SODIUM [Concomitant]
     Dosage: 1 MG, QD
  16. PENTOXIFYLLINE [Concomitant]
     Dosage: 400 MG, TID
     Dates: start: 20000724
  17. COZAAR [Concomitant]
     Dosage: 40 MG, QD
  18. CEFIXIME TRIHYDRATE [Concomitant]
     Dosage: 400 MG, QD
  19. CLINDAMYCIN [Concomitant]
     Dosage: 300 MG, QID
  20. ZOLOFT [Concomitant]
  21. PROCRIT [Concomitant]
  22. CHEMOTHERAPEUTICS,OTHER [Concomitant]
     Dosage: UNK, UNK
     Dates: start: 20001201

REACTIONS (15)
  - ABSCESS [None]
  - BONE DISORDER [None]
  - FISTULA [None]
  - HYPERBARIC OXYGEN THERAPY [None]
  - HYPOAESTHESIA [None]
  - INCISIONAL DRAINAGE [None]
  - INFECTION [None]
  - MANDIBULECTOMY [None]
  - ORAL SURGERY [None]
  - OSTEOMYELITIS [None]
  - OSTEONECROSIS [None]
  - SEQUESTRECTOMY [None]
  - SUBCUTANEOUS ABSCESS [None]
  - TOOTH EXTRACTION [None]
  - WOUND DEBRIDEMENT [None]
